FAERS Safety Report 8725020 (Version 2)
Quarter: 2015Q2

REPORT INFORMATION
  Report Type: Report from Study
  Country: US (occurrence: US)
  Receive Date: 20120815
  Receipt Date: 20150407
  Transmission Date: 20150821
  Serious: Yes (Hospitalization)
  Sender: FDA-Public Use
  Company Number: US-ROCHE-1101214

PATIENT
  Sex: Male

DRUGS (4)
  1. HEPARIN [Concomitant]
     Active Substance: HEPARIN SODIUM
     Dosage: 5000 UNITS
     Route: 065
  2. LIDOCAINE. [Concomitant]
     Active Substance: LIDOCAINE
  3. ACTIVASE [Suspect]
     Active Substance: ALTEPLASE
     Indication: MYOCARDIAL INFARCTION
     Route: 040
     Dates: start: 19950310
  4. ACTIVASE [Suspect]
     Active Substance: ALTEPLASE
     Route: 040

REACTIONS (2)
  - Pain [Recovered/Resolved]
  - Headache [Unknown]
